FAERS Safety Report 7307246-3 (Version None)
Quarter: 2011Q1

REPORT INFORMATION
  Report Type: 
  Country: None (occurrence: None)
  Receive Date: 20110223
  Receipt Date: 20110216
  Transmission Date: 20110831
  Serious: Yes (Other)
  Sender: FDA-Public Use
  Company Number: US-PFIZER INC-2011034664

PATIENT
  Sex: Female
  Weight: 115.7 kg

DRUGS (1)
  1. EFFEXOR [Suspect]
     Indication: DEPRESSION
     Dosage: 500 MG, 3X/DAY

REACTIONS (2)
  - RENAL FAILURE [None]
  - DRUG ADMINISTRATION ERROR [None]
